FAERS Safety Report 23757842 (Version 1)
Quarter: 2024Q2

REPORT INFORMATION
  Report Type: Spontaneous
  Country: CA (occurrence: CA)
  Receive Date: 20240418
  Receipt Date: 20240418
  Transmission Date: 20240716
  Serious: Yes (Life-Threatening, Hospitalization)
  Sender: FDA-Public Use
  Company Number: CA-HLS-202400940

PATIENT
  Sex: Male
  Weight: 90 kg

DRUGS (4)
  1. ARIPIPRAZOLE [Concomitant]
     Active Substance: ARIPIPRAZOLE
     Dosage: NOT SPECIFIED DOSAGE FORM
     Route: 065
  2. CLOZARIL [Suspect]
     Active Substance: CLOZAPINE
     Indication: Schizophrenia
     Dosage: 1 EVERY 1 DAYS?AMOUNT: 425 MILLIGRAM?TABLETS DOSAGE FORM
     Route: 048
  3. LACTULOSE [Concomitant]
     Active Substance: LACTULOSE
     Route: 065
  4. TRAZODONE [Concomitant]
     Active Substance: TRAZODONE HYDROCHLORIDE
     Dosage: TABLETS DOSAGE FORM
     Route: 065

REACTIONS (7)
  - Clonus [Recovering/Resolving]
  - Lactose intolerance [Recovering/Resolving]
  - Pyrexia [Recovering/Resolving]
  - Salivary hypersecretion [Recovering/Resolving]
  - Sedation [Recovering/Resolving]
  - Toxicity to various agents [Recovering/Resolving]
  - Treatment noncompliance [Recovering/Resolving]
